FAERS Safety Report 10597334 (Version 1)
Quarter: 2014Q4

REPORT INFORMATION
  Report Type: Spontaneous
  Country: GB (occurrence: GB)
  Receive Date: 20141121
  Receipt Date: 20141121
  Transmission Date: 20150529
  Serious: Yes (Other)
  Sender: FDA-Public Use
  Company Number: GB-AMGEN-GBRSP2014089974

PATIENT
  Sex: Female

DRUGS (2)
  1. ENBREL [Suspect]
     Active Substance: ETANERCEPT
     Indication: PRODUCT USED FOR UNKNOWN INDICATION
     Dosage: 50 MG, WEEKLY
     Route: 065
     Dates: start: 20140717
  2. METHOTREXATE [Concomitant]
     Active Substance: METHOTREXATE
     Dosage: 25 MG, WEEKLY ON THURSDAY

REACTIONS (6)
  - Mobility decreased [Unknown]
  - Weight bearing difficulty [Unknown]
  - Muscular weakness [Unknown]
  - Skin reaction [Unknown]
  - Lower respiratory tract infection [Unknown]
  - Grip strength decreased [Unknown]
